FAERS Safety Report 12619625 (Version 1)
Quarter: 2016Q3

REPORT INFORMATION
  Report Type: Report from Study
  Country: US (occurrence: US)
  Receive Date: 20160803
  Receipt Date: 20160803
  Transmission Date: 20161109
  Serious: Yes (Other)
  Sender: FDA-Public Use
  Company Number: US-MYLANLABS-2016M1032102

PATIENT

DRUGS (5)
  1. FOLINIC ACID [Suspect]
     Active Substance: LEUCOVORIN
     Indication: OESOPHAGEAL ADENOCARCINOMA
     Dosage: 400 MG/M2
     Route: 065
  2. EVEROLIMUS [Suspect]
     Active Substance: EVEROLIMUS
     Indication: OESOPHAGEAL ADENOCARCINOMA
     Dosage: 2.5MG DAILY
     Route: 065
  3. FLUOROURACIL. [Suspect]
     Active Substance: FLUOROURACIL
     Dosage: 2,400 MG/M2 CONTINUOUS INFUSION DAYS 1-2
     Route: 050
  4. OXALIPLATIN MYLAN [Suspect]
     Active Substance: OXALIPLATIN
     Indication: OESOPHAGEAL ADENOCARCINOMA
     Dosage: 85 MG/M2 EVERY 2 WEEKS
     Route: 065
  5. FLUOROURACIL. [Suspect]
     Active Substance: FLUOROURACIL
     Indication: OESOPHAGEAL ADENOCARCINOMA
     Dosage: 400 MG/M2 SLOW PUSH ON DAY 1; DOSE: INCREASED TO 2,400 MG/M2 CONTINUOUS INFUSION DAYS 1-2
     Route: 050

REACTIONS (2)
  - Neutropenia [Unknown]
  - Pyrexia [Unknown]
